FAERS Safety Report 14186085 (Version 7)
Quarter: 2019Q4

REPORT INFORMATION
  Report Type: Report from Study
  Country: BR (occurrence: BR)
  Receive Date: 20171114
  Receipt Date: 20191017
  Transmission Date: 20200122
  Serious: Yes (Other)
  Sender: FDA-Public Use
  Company Number: BR-ROCHE-2006970

PATIENT
  Age: 72 Year
  Sex: Female
  Weight: 77 kg

DRUGS (9)
  1. XOLAIR [Suspect]
     Active Substance: OMALIZUMAB
     Route: 058
     Dates: start: 20190429
  2. XOLAIR [Suspect]
     Active Substance: OMALIZUMAB
     Indication: URTICARIA
     Route: 058
     Dates: start: 201507
  3. XOLAIR [Suspect]
     Active Substance: OMALIZUMAB
     Route: 058
     Dates: start: 20170713
  4. XOLAIR [Suspect]
     Active Substance: OMALIZUMAB
     Indication: EXPOSURE TO TOXIC AGENT
     Route: 058
     Dates: start: 20170927
  5. XOLAIR [Suspect]
     Active Substance: OMALIZUMAB
     Route: 030
  6. LEVOID [Concomitant]
     Active Substance: LEVOTHYROXINE
     Indication: THYROID DISORDER
     Dosage: 7 YEARS
     Route: 065
  7. XOLAIR [Suspect]
     Active Substance: OMALIZUMAB
     Indication: CHRONIC SPONTANEOUS URTICARIA
     Dosage: 150 MG, QMO
     Route: 058
  8. XOLAIR [Suspect]
     Active Substance: OMALIZUMAB
     Route: 058
     Dates: start: 20170627
  9. XOLAIR [Suspect]
     Active Substance: OMALIZUMAB
     Route: 058
     Dates: start: 20190903

REACTIONS (16)
  - Neoplasm malignant [Unknown]
  - Vein rupture [Not Recovered/Not Resolved]
  - Spinal disorder [Recovering/Resolving]
  - Osteoarthritis [Recovering/Resolving]
  - Hypersensitivity [Not Recovered/Not Resolved]
  - Body height decreased [Recovering/Resolving]
  - Product use in unapproved indication [Unknown]
  - Varicose vein [Not Recovered/Not Resolved]
  - Incorrect route of product administration [Unknown]
  - Drug ineffective [Unknown]
  - Urticaria [Recovering/Resolving]
  - Drug dependence [Unknown]
  - Cardiovascular disorder [Not Recovered/Not Resolved]
  - Skin ulcer [Not Recovered/Not Resolved]
  - Procedural pain [Recovering/Resolving]
  - Pruritus [Not Recovered/Not Resolved]

NARRATIVE: CASE EVENT DATE: 20160813
